FAERS Safety Report 20305815 (Version 1)
Quarter: 2022Q1

REPORT INFORMATION
  Report Type: Spontaneous
  Country: US (occurrence: None)
  Receive Date: 20220106
  Receipt Date: 20220106
  Transmission Date: 20220424
  Serious: No
  Sender: FDA-Public Use
  Company Number: 2021A895977

PATIENT

DRUGS (1)
  1. SAPHNELO [Suspect]
     Active Substance: ANIFROLUMAB-FNIA
     Indication: Acute cutaneous lupus erythematosus
     Dosage: UNKNOWN
     Route: 042
     Dates: start: 2021

REACTIONS (5)
  - Infection [Unknown]
  - Swelling face [Unknown]
  - Sinusitis [Unknown]
  - Urinary tract infection [Unknown]
  - Vaginal infection [Unknown]
